FAERS Safety Report 6005671-4 (Version None)
Quarter: 2008Q4

REPORT INFORMATION
  Report Type: 
  Country: None (occurrence: None)
  Receive Date: 20081217
  Receipt Date: 20081118
  Transmission Date: 20090506
  Serious: No
  Sender: FDA-Public Use
  Company Number: US-BAYER-200839112NA

PATIENT
  Age: 45 Year
  Sex: Female
  Weight: 52 kg

DRUGS (2)
  1. YAZ [Suspect]
     Indication: CONTRACEPTION
     Route: 048
     Dates: start: 20080801, end: 20081027
  2. ORTHO-NOVUM [Concomitant]
     Dates: start: 19830101

REACTIONS (5)
  - ALOPECIA [None]
  - HEADACHE [None]
  - RASH [None]
  - VISUAL IMPAIRMENT [None]
  - WEIGHT INCREASED [None]
